FAERS Safety Report 25932513 (Version 1)
Quarter: 2025Q4

REPORT INFORMATION
  Report Type: Spontaneous
  Country: US (occurrence: US)
  Receive Date: 20251017
  Receipt Date: 20251017
  Transmission Date: 20260118
  Serious: No
  Sender: SANDOZ
  Company Number: US-SANDOZ-SDZ2025US076290

PATIENT
  Sex: Male

DRUGS (2)
  1. CIPROFLOXACIN AND DEXAMETHASONE [Suspect]
     Active Substance: CIPROFLOXACIN HYDROCHLORIDE\DEXAMETHASONE
     Dosage: UNK, 0.3+0.1% 7.5ML (STERILE OTIC SUSPENSION)
     Route: 065
  2. CIPROFLOXACIN AND DEXAMETHASONE [Suspect]
     Active Substance: CIPROFLOXACIN HYDROCHLORIDE\DEXAMETHASONE
     Indication: Product used for unknown indication
     Dosage: UNK, 0.3+0.1% 7.5ML (STERILE OTIC SUSPENSION)
     Route: 065

REACTIONS (2)
  - Drug effect less than expected [Unknown]
  - Product quality issue [Unknown]
